FAERS Safety Report 21212182 (Version 1)
Quarter: 2022Q3

REPORT INFORMATION
  Report Type: Spontaneous
  Country: US (occurrence: US)
  Receive Date: 20220815
  Receipt Date: 20220815
  Transmission Date: 20221026
  Serious: Yes (Hospitalization, Other)
  Sender: FDA-Public Use
  Company Number: US-BAYER-2022A109981

PATIENT
  Age: 81 Year
  Sex: Female
  Weight: 55.782 kg

DRUGS (9)
  1. ASPIRIN [Suspect]
     Active Substance: ASPIRIN
  2. HUMIRA [Concomitant]
     Active Substance: ADALIMUMAB
     Indication: Crohn^s disease
     Dosage: UNK
     Route: 058
     Dates: start: 20210808
  3. ACETAMINOPHEN\TRAMADOL [Concomitant]
     Active Substance: ACETAMINOPHEN\TRAMADOL
     Indication: Pain
  4. CHONDROITIN [Concomitant]
     Active Substance: CHONDROITIN
  5. FLONASE ALLERGY RELIEF [Concomitant]
     Active Substance: FLUTICASONE PROPIONATE
  6. LAMISIL [Concomitant]
     Active Substance: TERBINAFINE HYDROCHLORIDE
  7. MYRBETRIQ [Concomitant]
     Active Substance: MIRABEGRON
  8. FISH OIL [Concomitant]
     Active Substance: FISH OIL
  9. IRON [Concomitant]
     Active Substance: IRON

REACTIONS (5)
  - Transient ischaemic attack [Unknown]
  - Memory impairment [Not Recovered/Not Resolved]
  - Musculoskeletal disorder [Not Recovered/Not Resolved]
  - Gastric disorder [Unknown]
  - Transient ischaemic attack [Recovered/Resolved]

NARRATIVE: CASE EVENT DATE: 20210801
